FAERS Safety Report 25799192 (Version 1)
Quarter: 2025Q3

REPORT INFORMATION
  Report Type: Spontaneous
  Country: US (occurrence: US)
  Receive Date: 20250913
  Receipt Date: 20250913
  Transmission Date: 20251021
  Serious: No
  Sender: ELI LILLY AND COMPANY
  Company Number: US-ELI_LILLY_AND_COMPANY-US202509011369

PATIENT
  Age: 61 Year
  Sex: Female

DRUGS (14)
  1. ZEPBOUND [Suspect]
     Active Substance: TIRZEPATIDE
     Indication: Weight control
     Dosage: 2.5 MG, WEEKLY (1/W)
     Route: 058
     Dates: start: 202503
  2. ZEPBOUND [Suspect]
     Active Substance: TIRZEPATIDE
     Indication: Sleep apnoea syndrome
  3. ZEPBOUND [Suspect]
     Active Substance: TIRZEPATIDE
     Indication: Sleep apnoea syndrome
     Dosage: 5 MG, WEEKLY (1/W)
     Route: 058
  4. ZEPBOUND [Suspect]
     Active Substance: TIRZEPATIDE
     Indication: Weight control
  5. ZEPBOUND [Suspect]
     Active Substance: TIRZEPATIDE
     Indication: Weight control
     Dosage: 7.5 MG, WEEKLY (1/W)
     Route: 058
  6. ZEPBOUND [Suspect]
     Active Substance: TIRZEPATIDE
     Indication: Sleep apnoea syndrome
  7. ZEPBOUND [Suspect]
     Active Substance: TIRZEPATIDE
     Indication: Sleep apnoea syndrome
     Dosage: 10 MG, WEEKLY (1/W)
     Route: 058
  8. ZEPBOUND [Suspect]
     Active Substance: TIRZEPATIDE
     Indication: Weight control
  9. ZEPBOUND [Suspect]
     Active Substance: TIRZEPATIDE
     Indication: Weight control
     Dosage: 12.5 MG, WEEKLY (1/W)
     Route: 058
     Dates: start: 202408
  10. ZEPBOUND [Suspect]
     Active Substance: TIRZEPATIDE
     Indication: Sleep apnoea syndrome
  11. PROPRANOLOL [Concomitant]
     Active Substance: PROPRANOLOL HYDROCHLORIDE
     Indication: Product used for unknown indication
     Dosage: 20 MG, DAILY
  12. LISINOPRIL [Concomitant]
     Active Substance: LISINOPRIL
     Indication: Product used for unknown indication
     Dosage: 20 MG, DAILY
  13. AMITRIPTYLINE [Concomitant]
     Active Substance: AMITRIPTYLINE
     Indication: Product used for unknown indication
     Dosage: 50 MG, DAILY
  14. FLUOXETINE [Concomitant]
     Active Substance: FLUOXETINE HYDROCHLORIDE
     Indication: Product used for unknown indication
     Dosage: 40 MG, DAILY

REACTIONS (6)
  - Confusional state [Recovering/Resolving]
  - Vertigo [Unknown]
  - Dizziness [Recovering/Resolving]
  - Injection site bruising [Unknown]
  - Alopecia [Unknown]
  - Nausea [Unknown]
